FAERS Safety Report 17969545 (Version 1)
Quarter: 2020Q3

REPORT INFORMATION
  Report Type: Spontaneous
  Country: DE (occurrence: DE)
  Receive Date: 20200701
  Receipt Date: 20200701
  Transmission Date: 20201103
  Serious: Yes (Hospitalization)
  Sender: FDA-Public Use
  Company Number: DE-ROCHE-2630245

PATIENT
  Age: 72 Year
  Sex: Male

DRUGS (8)
  1. OXALIPLATIN. [Suspect]
     Active Substance: OXALIPLATIN
     Indication: PRODUCT USED FOR UNKNOWN INDICATION
     Route: 065
  2. FOLINSAEURE [Suspect]
     Active Substance: LEUCOVORIN
     Indication: PRODUCT USED FOR UNKNOWN INDICATION
     Route: 065
  3. BISOPROLOL [Concomitant]
     Active Substance: BISOPROLOL
     Dosage: 1?0?1?0
     Route: 048
  4. ACETYLSALICYLSAEURE [Concomitant]
     Active Substance: ASPIRIN
     Route: 048
  5. FLUOROURACIL. [Suspect]
     Active Substance: FLUOROURACIL
     Indication: PRODUCT USED FOR UNKNOWN INDICATION
     Route: 065
  6. BEVACIZUMAB. [Suspect]
     Active Substance: BEVACIZUMAB
     Indication: PRODUCT USED FOR UNKNOWN INDICATION
     Route: 065
  7. OXYCODON [Suspect]
     Active Substance: OXYCODONE
     Indication: PRODUCT USED FOR UNKNOWN INDICATION
     Dosage: 10 MG, 1?0?1?0
     Route: 048
  8. PREGABALIN. [Concomitant]
     Active Substance: PREGABALIN
     Dosage: 0?0?1?0
     Route: 048

REACTIONS (8)
  - Dizziness [Unknown]
  - Fall [Unknown]
  - Condition aggravated [Unknown]
  - Asthenia [Unknown]
  - General physical health deterioration [Unknown]
  - Pallor [Unknown]
  - Oedema peripheral [Unknown]
  - Fatigue [Unknown]
